FAERS Safety Report 6662441-1 (Version None)
Quarter: 2010Q1

REPORT INFORMATION
  Report Type: 
  Country: None (occurrence: None)
  Receive Date: 20100329
  Receipt Date: 20100312
  Transmission Date: 20100710
  Serious: Yes (Life-Threatening, Hospitalization, Disabling)
  Sender: FDA-Public Use
  Company Number: 2010US000009

PATIENT
  Age: 59 Year
  Sex: Male

DRUGS (3)
  1. ENTEREG [Suspect]
     Indication: POSTOPERATIVE ILEUS
     Dosage: 12 MG; PO
     Route: 048
     Dates: start: 20100205, end: 20100208
  2. LEUPRORELIN [Concomitant]
  3. FLOMAX [Concomitant]

REACTIONS (2)
  - ANASTOMOTIC LEAK [None]
  - NEUTROPENIA [None]
